FAERS Safety Report 5489080-2 (Version None)
Quarter: 2007Q4

REPORT INFORMATION
  Report Type: 
  Country: None (occurrence: None)
  Receive Date: 20071005
  Receipt Date: 20070723
  Transmission Date: 20080405
  Serious: No
  Sender: FDA-Public Use
  Company Number: PHEH2007US08934

PATIENT
  Age: 83 Year
  Sex: Female

DRUGS (7)
  1. TEKTURNA [Suspect]
     Indication: HYPERTENSION
     Dosage: 150 MG, QD, ORAL; 75 MG, QD, ORAL
     Route: 048
     Dates: start: 20070501
  2. ATACAND [Suspect]
  3. DIGOXIN [Suspect]
  4. VITAMIN D [Suspect]
  5. SPIRIVA [Concomitant]
  6. MAXAIR [Concomitant]
  7. CLONIDINE [Concomitant]

REACTIONS (2)
  - DRUG INTERACTION [None]
  - DYSPNOEA [None]
